FAERS Safety Report 6557466-0 (Version None)
Quarter: 2010Q1

REPORT INFORMATION
  Report Type: 
  Country: None (occurrence: None)
  Receive Date: 20100129
  Receipt Date: 20100119
  Transmission Date: 20100710
  Serious: Yes (Hospitalization, Other)
  Sender: FDA-Public Use
  Company Number: US-JNJFOC-20091008437

PATIENT
  Sex: Female
  Weight: 64.86 kg

DRUGS (7)
  1. REMICADE [Suspect]
     Indication: RHEUMATOID ARTHRITIS
     Route: 042
     Dates: start: 20090930, end: 20091015
  2. REMICADE [Suspect]
     Route: 042
     Dates: start: 20090930, end: 20091015
  3. GABAPENTIN [Concomitant]
     Indication: PAIN
  4. OXYCONTIN [Concomitant]
     Indication: PAIN
  5. PERCOCET [Concomitant]
     Indication: PAIN
  6. XANAX [Concomitant]
  7. PREDNISONE [Concomitant]

REACTIONS (10)
  - CHILLS [None]
  - DYSPNOEA [None]
  - ERYTHEMA [None]
  - FACIAL PAIN [None]
  - INFUSION RELATED REACTION [None]
  - PAIN [None]
  - PARAESTHESIA [None]
  - PARALYSIS [None]
  - TREMOR [None]
  - URTICARIA [None]
